FAERS Safety Report 9349847 (Version 1)
Quarter: 2013Q2

REPORT INFORMATION
  Report Type: Spontaneous
  Country: US (occurrence: US)
  Receive Date: 20130614
  Receipt Date: 20130614
  Transmission Date: 20140414
  Serious: Yes (Hospitalization, Other)
  Sender: FDA-Public Use
  Company Number: US-PFIZER INC-2013175324

PATIENT
  Age: 84 Year
  Sex: Female

DRUGS (5)
  1. ADVIL [Suspect]
     Indication: SPONDYLITIS
     Dosage: UNK
  2. ADVIL [Suspect]
     Indication: ARTHRITIS
  3. LANSOPRAZOLE [Suspect]
     Dosage: UNK
     Dates: end: 20130525
  4. ALEVE [Suspect]
     Indication: SPONDYLITIS
     Dosage: UNK
  5. ALEVE [Suspect]
     Indication: ARTHRITIS

REACTIONS (15)
  - Pneumonia [Unknown]
  - Dyspnoea [Unknown]
  - Staphylococcal infection [Unknown]
  - Oral mucosal exfoliation [Unknown]
  - Chronic obstructive pulmonary disease [Unknown]
  - Food poisoning [Unknown]
  - Dehydration [Unknown]
  - Pneumothorax [Unknown]
  - Rash [Unknown]
  - Drug ineffective [Unknown]
  - Local swelling [Unknown]
  - Nerve compression [Unknown]
  - Arthritis [Unknown]
  - Foot deformity [Unknown]
  - Malaise [Unknown]
